FAERS Safety Report 5217702-X (Version None)
Quarter: 2007Q1

REPORT INFORMATION
  Report Type: 
  Country: None (occurrence: None)
  Receive Date: 20061130
  Receipt Date: 20060614
  Transmission Date: 20070707
  Serious: Yes (Other)
  Sender: FDA-Public Use
  Company Number: US200601005125

PATIENT
  Age: 45 Year
  Sex: Female
  Weight: 104.3 kg

DRUGS (18)
  1. ZYPREXA [Suspect]
     Indication: ANXIETY
     Dosage: SEE IMAGE
     Dates: start: 20000119, end: 20000426
  2. ZYPREXA [Suspect]
     Indication: ANXIETY
     Dosage: SEE IMAGE
     Dates: start: 20000426, end: 20000626
  3. ZYPREXA [Suspect]
     Indication: ANXIETY
     Dosage: SEE IMAGE
     Dates: start: 20000626, end: 20060103
  4. ZYPREXA [Suspect]
     Indication: ANXIETY
     Dosage: SEE IMAGE
     Dates: start: 19980101
  5. ZYPREXA [Suspect]
     Indication: ANXIETY
     Dosage: SEE IMAGE
     Dates: start: 20060103
  6. TRAZODONE HCL [Concomitant]
  7. THIOTHIXENE [Concomitant]
  8. CLONAZEPAM [Concomitant]
  9. PAXIL [Concomitant]
  10. FUROSEMIDE [Concomitant]
  11. LORAZEPAM [Concomitant]
  12. EFFEXOR [Concomitant]
  13. ALPRAZOLAM [Concomitant]
  14. XENICAL /GFR/ (ORLISTAT) [Concomitant]
  15. CARISOPRODOL [Concomitant]
  16. WELLBUTRIN SR [Concomitant]
  17. ENALAPRIL MALEATE [Concomitant]
  18. ZOCOR [Concomitant]

REACTIONS (2)
  - DIABETES MELLITUS NON-INSULIN-DEPENDENT [None]
  - WEIGHT INCREASED [None]
